FAERS Safety Report 8534615-6 (Version None)
Quarter: 2012Q3

REPORT INFORMATION
  Report Type: 
  Country: None (occurrence: None)
  Receive Date: 20120724
  Receipt Date: 20120718
  Transmission Date: 20120928
  Serious: Yes (Hospitalization)
  Sender: FDA-Public Use
  Company Number: US-PURDUE-USA-2012-0087769

PATIENT
  Sex: Male

DRUGS (1)
  1. OXYCONTIN [Suspect]
     Indication: LUMBAR RADICULOPATHY
     Dosage: 160 MG, Q12H
     Route: 048

REACTIONS (2)
  - PNEUMONIA [None]
  - BRONCHITIS [None]
